FAERS Safety Report 5533854-6 (Version None)
Quarter: 2007Q4

REPORT INFORMATION
  Report Type: 
  Country: None (occurrence: None)
  Receive Date: 20071204
  Receipt Date: 20071127
  Transmission Date: 20080405
  Serious: Yes (Disabling, Other)
  Sender: FDA-Public Use
  Company Number: US-MERCK-0711USA05024

PATIENT
  Age: 79 Year
  Sex: Female
  Weight: 79 kg

DRUGS (4)
  1. DECADRON [Suspect]
     Indication: MULTIPLE MYELOMA
     Route: 048
  2. THALOMID [Suspect]
     Indication: MULTIPLE MYELOMA
     Route: 048
     Dates: start: 20070101, end: 20070501
  3. LASIX [Concomitant]
     Route: 065
  4. LASIX [Concomitant]
     Route: 065

REACTIONS (4)
  - BACK PAIN [None]
  - OEDEMA PERIPHERAL [None]
  - RASH [None]
  - SKIN DISORDER [None]
